FAERS Safety Report 17506328 (Version 2)
Quarter: 2024Q2

REPORT INFORMATION
  Report Type: Spontaneous
  Country: US (occurrence: None)
  Receive Date: 20200305
  Receipt Date: 20240517
  Transmission Date: 20240716
  Serious: Yes (Other)
  Sender: FDA-Public Use
  Company Number: US-ROCHE-2422843

PATIENT
  Age: 68 Year
  Sex: Female

DRUGS (1)
  1. XOLAIR [Suspect]
     Active Substance: OMALIZUMAB
     Indication: Chronic spontaneous urticaria
     Route: 058
     Dates: start: 20181118, end: 20190909

REACTIONS (3)
  - Therapy non-responder [Not Recovered/Not Resolved]
  - Chronic spontaneous urticaria [Unknown]
  - Product quality issue [Unknown]

NARRATIVE: CASE EVENT DATE: 20190909
